FAERS Safety Report 20517385 (Version 2)
Quarter: 2022Q1

REPORT INFORMATION
  Report Type: Spontaneous
  Country: JP (occurrence: JP)
  Receive Date: 20220225
  Receipt Date: 20220318
  Transmission Date: 20220424
  Serious: Yes (Hospitalization, Other)
  Sender: FDA-Public Use
  Company Number: JP-SAKK-00985555

PATIENT

DRUGS (1)
  1. LANTUS SOLOSTAR [Suspect]
     Active Substance: INSULIN GLARGINE
     Indication: Type 1 diabetes mellitus
     Dosage: 15 U, EVENING 4 U
     Route: 058

REACTIONS (3)
  - Nasopharyngitis [Recovered/Resolved]
  - Cardiac arrest [Recovered/Resolved]
  - Inappropriate schedule of product administration [Unknown]
